FAERS Safety Report 8468823-X (Version None)
Quarter: 2012Q2

REPORT INFORMATION
  Report Type: 
  Country: None (occurrence: None)
  Receive Date: 20120607
  Receipt Date: 20120531
  Transmission Date: 20120825
  Serious: Yes (Hospitalization)
  Sender: FDA-Public Use
  Company Number: 2012032517

PATIENT
  Sex: Female

DRUGS (1)
  1. HIZENTRA [Suspect]
     Indication: PRIMARY IMMUNODEFICIENCY SYNDROME
     Dosage: SUBCUTANEOUS
     Route: 058

REACTIONS (4)
  - HEPATOBILIARY DISEASE [None]
  - PANCREATITIS [None]
  - ABDOMINAL PAIN [None]
  - HEADACHE [None]
